FAERS Safety Report 24197918 (Version 1)
Quarter: 2024Q3

REPORT INFORMATION
  Report Type: Report from Study
  Country: US (occurrence: US)
  Receive Date: 20240812
  Receipt Date: 20240812
  Transmission Date: 20241016
  Serious: No
  Sender: ACADIA PHARMACEUTICALS
  Company Number: US-ACADIA PHARMACEUTICALS INC.-ACA-2024-PIM-003763

PATIENT
  Sex: Female

DRUGS (16)
  1. NUPLAZID [Suspect]
     Active Substance: PIMAVANSERIN TARTRATE
     Indication: Parkinson^s disease
     Dosage: 34 MILLIGRAM, QD
     Route: 048
  2. ACETAMINOPHEN [Concomitant]
     Active Substance: ACETAMINOPHEN
  3. OXYGEN [Concomitant]
     Active Substance: OXYGEN
  4. LIPITOR [Concomitant]
     Active Substance: ATORVASTATIN CALCIUM
  5. JANUMET [Concomitant]
     Active Substance: METFORMIN HYDROCHLORIDE\SITAGLIPTIN PHOSPHATE
  6. SYNTHROID [Concomitant]
     Active Substance: LEVOTHYROXINE SODIUM
  7. LASIX [Concomitant]
     Active Substance: FUROSEMIDE
  8. POTASSIUM CHLORIDE [Concomitant]
     Active Substance: POTASSIUM CHLORIDE
  9. PIROXICAM [Concomitant]
     Active Substance: PIROXICAM
  10. MYRBETRIQ [Concomitant]
     Active Substance: MIRABEGRON
  11. BUDESONIDE\FORMOTEROL FUMARATE [Concomitant]
     Active Substance: BUDESONIDE\FORMOTEROL FUMARATE
  12. VITAMIN B12 [Concomitant]
     Active Substance: CYANOCOBALAMIN
  13. DILTIAZEM [Concomitant]
     Active Substance: DILTIAZEM
  14. LYRICA [Concomitant]
     Active Substance: PREGABALIN
  15. LISINOPRIL [Concomitant]
     Active Substance: LISINOPRIL
  16. CAMZYOS [Concomitant]
     Active Substance: MAVACAMTEN

REACTIONS (1)
  - Plantar fasciitis [Unknown]
